FAERS Safety Report 7817972-5 (Version None)
Quarter: 2011Q4

REPORT INFORMATION
  Report Type: 
  Country: None (occurrence: None)
  Receive Date: 20111017
  Receipt Date: 20111003
  Transmission Date: 20120403
  Serious: Yes (Hospitalization)
  Sender: FDA-Public Use
  Company Number: IT-GLAXOSMITHKLINE-B0754972A

PATIENT
  Sex: Female

DRUGS (1)
  1. REQUIP [Suspect]
     Indication: PRODUCT USED FOR UNKNOWN INDICATION
     Dates: start: 20110801

REACTIONS (6)
  - OEDEMA PERIPHERAL [None]
  - LEUKOCYTOCLASTIC VASCULITIS [None]
  - DRUG HYPERSENSITIVITY [None]
  - PYREXIA [None]
  - PAPULE [None]
  - FATIGUE [None]
